FAERS Safety Report 4859231-9 (Version None)
Quarter: 2005Q4

REPORT INFORMATION
  Report Type: 
  Country: None (occurrence: None)
  Receive Date: 20051219
  Receipt Date: 20051207
  Transmission Date: 20060501
  Serious: Yes (Hospitalization, Other)
  Sender: FDA-Public Use
  Company Number: DE-AMGEN-UK160509

PATIENT
  Sex: Female
  Weight: 64 kg

DRUGS (3)
  1. NEULASTA [Suspect]
     Indication: CHEMOTHERAPY
     Route: 065
     Dates: start: 20050925, end: 20051202
  2. EPIRUBICIN [Concomitant]
     Route: 065
     Dates: start: 20050922
  3. TAXOL [Concomitant]
     Route: 065
     Dates: start: 20051103

REACTIONS (2)
  - BONE PAIN [None]
  - LEUKOCYTOSIS [None]
